FAERS Safety Report 5071544-7 (Version None)
Quarter: 2006Q3

REPORT INFORMATION
  Report Type: 
  Country: None (occurrence: None)
  Receive Date: 20060803
  Receipt Date: 20060803
  Transmission Date: 20061208
  Serious: Yes (Other)
  Sender: FDA-Public Use
  Company Number: None

PATIENT
  Age: 82 Year
  Sex: Male
  Weight: 64.4108 kg

DRUGS (7)
  1. VYTORIN [Suspect]
     Indication: DYSLIPIDAEMIA
     Dosage: ONE DAILY AT BEDTIME
     Dates: start: 20060729, end: 20060801
  2. TRAVATAN [Concomitant]
  3. FELODIPINE [Concomitant]
  4. ZOLOFT [Concomitant]
  5. MIACALCIN [Concomitant]
  6. PROVIGIL [Concomitant]
  7. NEXIUM [Concomitant]

REACTIONS (1)
  - VISION BLURRED [None]
